FAERS Safety Report 5673434-5 (Version None)
Quarter: 2008Q1

REPORT INFORMATION
  Report Type: 
  Country: None (occurrence: None)
  Receive Date: 20080319
  Receipt Date: 20080307
  Transmission Date: 20080703
  Serious: Yes (Other)
  Sender: FDA-Public Use
  Company Number: JP-ROCHE-547098

PATIENT
  Age: 9 Year
  Sex: Male

DRUGS (5)
  1. TAMIFLU [Suspect]
     Dosage: DRUG REPORTED AS TAMIFLU DRY SYRUP 3% (OSELTAMIVIR) DOSE AND DOSE FORM CODED PER DRUG INFORMATION.
     Route: 048
     Dates: start: 20080203, end: 20080203
  2. MUCODYNE [Concomitant]
     Route: 048
     Dates: start: 20080203
  3. ASVERIN [Concomitant]
     Route: 048
     Dates: start: 20080203
  4. MEDICON [Concomitant]
     Route: 048
     Dates: start: 20080203
  5. CALONAL [Concomitant]
     Dosage: TAKEN AS NEEDED
     Route: 048
     Dates: start: 20080203

REACTIONS (1)
  - ABNORMAL BEHAVIOUR [None]
